FAERS Safety Report 24020132 (Version 1)
Quarter: 2024Q2

REPORT INFORMATION
  Report Type: Spontaneous
  Country: US (occurrence: US)
  Receive Date: 20240627
  Receipt Date: 20240627
  Transmission Date: 20240716
  Serious: Yes (Other)
  Sender: FDA-Public Use
  Company Number: US-MLMSERVICE-20240617-PI102913-00073-1

PATIENT
  Age: 33 Year
  Sex: Male

DRUGS (1)
  1. BUPRENORPHINE [Suspect]
     Active Substance: BUPRENORPHINE\BUPRENORPHINE HYDROCHLORIDE
     Indication: Drug use disorder
     Dosage: 1 DOSAGE FORM, {TOTAL} EXTENDED-RELEASE
     Route: 058

REACTIONS (2)
  - Skin necrosis [Recovered/Resolved with Sequelae]
  - Incorrect route of product administration [Recovered/Resolved]
